FAERS Safety Report 8105399-0 (Version None)
Quarter: 2012Q1

REPORT INFORMATION
  Report Type: 
  Country: None (occurrence: None)
  Receive Date: 20120201
  Receipt Date: 20120127
  Transmission Date: 20120608
  Serious: Yes (Hospitalization)
  Sender: FDA-Public Use
  Company Number: NL-US-EMD SERONO, INC.-7093445

PATIENT
  Sex: Male
  Weight: 109 kg

DRUGS (5)
  1. PAMIDRONATE DISODIUM [Concomitant]
     Indication: PRODUCT USED FOR UNKNOWN INDICATION
     Route: 042
     Dates: start: 20110706
  2. DI-17E6 (EMD 525797) [Suspect]
     Indication: PROSTATE CANCER METASTATIC
     Route: 042
     Dates: start: 20111003
  3. IBUPROFEN [Concomitant]
     Indication: MYALGIA
     Route: 048
     Dates: start: 20111011
  4. LEUPROLIDE ACETATE [Concomitant]
     Indication: PROSTATE CANCER
     Route: 058
     Dates: start: 20100601
  5. DI-17E6 (EMD 525797) [Suspect]
     Route: 042
     Dates: start: 20111031

REACTIONS (1)
  - PYREXIA [None]
